FAERS Safety Report 10137547 (Version 1)
Quarter: 2014Q2

REPORT INFORMATION
  Report Type: Spontaneous
  Country: US (occurrence: US)
  Receive Date: 20140429
  Receipt Date: 20140429
  Transmission Date: 20141212
  Serious: Yes (Other)
  Sender: FDA-Public Use
  Company Number: US-BAYER-2014-059678

PATIENT
  Age: 30 Year
  Sex: Female
  Weight: 63.04 kg

DRUGS (6)
  1. YAZ [Suspect]
  2. YASMIN [Suspect]
  3. NITROFURANTOIN [Concomitant]
     Dosage: 100 MG, UNK
     Dates: start: 20120410
  4. NITROFURANTOIN [Concomitant]
     Dosage: 100 MG, UNK
     Dates: start: 20120605
  5. PHENAZOPYRIDINE [Concomitant]
     Dosage: 200 MG, UNK
     Dates: start: 20120605
  6. NORCO [Concomitant]

REACTIONS (2)
  - Deep vein thrombosis [None]
  - Thrombophlebitis superficial [None]
